FAERS Safety Report 23058307 (Version 2)
Quarter: 2024Q2

REPORT INFORMATION
  Report Type: Spontaneous
  Country: US (occurrence: US)
  Receive Date: 20231012
  Receipt Date: 20240516
  Transmission Date: 20240715
  Serious: Yes (Other)
  Sender: FDA-Public Use
  Company Number: US-002147023-NVSC2023US215370

PATIENT
  Age: 59 Year
  Sex: Female

DRUGS (1)
  1. PIQRAY [Suspect]
     Active Substance: ALPELISIB
     Indication: Product used for unknown indication
     Dosage: 345 MG, QD
     Route: 048
     Dates: start: 20230728

REACTIONS (15)
  - Metastases to bone [Unknown]
  - Dehydration [Unknown]
  - Spinal pain [Unknown]
  - Arthralgia [Unknown]
  - Stomatitis [Recovered/Resolved]
  - Mouth injury [Recovered/Resolved]
  - Oral contusion [Recovered/Resolved]
  - Dry mouth [Recovered/Resolved]
  - Pain in extremity [Unknown]
  - Vomiting [Recovered/Resolved]
  - Malaise [Unknown]
  - Nasopharyngitis [Unknown]
  - Diarrhoea [Unknown]
  - Vertigo [Unknown]
  - Overdose [Unknown]
